FAERS Safety Report 16623280 (Version 1)
Quarter: 2019Q3

REPORT INFORMATION
  Report Type: Spontaneous
  Country: JP (occurrence: JP)
  Receive Date: 20190724
  Receipt Date: 20190724
  Transmission Date: 20191004
  Serious: Yes (Hospitalization, Other)
  Sender: FDA-Public Use
  Company Number: JP-SUN PHARMACEUTICAL INDUSTRIES LTD-2019RR-214595

PATIENT
  Age: 66 Year
  Sex: Male
  Weight: 62 kg

DRUGS (7)
  1. TIAPRIDE [Suspect]
     Active Substance: TIAPRIDE
     Indication: DEPRESSION
     Dosage: UNK
     Route: 065
  2. MIANSERIN [Suspect]
     Active Substance: MIANSERIN
     Indication: DEPRESSION
     Dosage: UNK
     Route: 065
  3. QUETIAPINE. [Suspect]
     Active Substance: QUETIAPINE
     Indication: DELIRIUM
     Dosage: 12.5 MILLIGRAM
     Dates: start: 201907
  4. SUVOREXANT. [Suspect]
     Active Substance: SUVOREXANT
     Indication: DEPRESSION
     Dosage: UNK
     Route: 065
  5. PAROXETINE. [Suspect]
     Active Substance: PAROXETINE
     Indication: DEPRESSION
     Dosage: UNK
     Route: 065
  6. RAMELTEON [Suspect]
     Active Substance: RAMELTEON
     Indication: DEPRESSION
     Dosage: UNK
     Route: 065
  7. QUETIAPINE. [Suspect]
     Active Substance: QUETIAPINE
     Dosage: 25 MILLIGRAM
     Route: 065
     Dates: start: 201908

REACTIONS (5)
  - Adrenomegaly [Unknown]
  - Gastrointestinal necrosis [Recovering/Resolving]
  - Diabetic ketoacidosis [Recovering/Resolving]
  - Waist circumference increased [Unknown]
  - Ischaemic enteritis [Unknown]
